FAERS Safety Report 21001543 (Version 1)
Quarter: 2022Q2

REPORT INFORMATION
  Report Type: Spontaneous
  Country: US (occurrence: US)
  Receive Date: 20220624
  Receipt Date: 20220624
  Transmission Date: 20220721
  Serious: No
  Sender: FDA-Public Use
  Company Number: US-BioHaven Pharmaceuticals-2022BHV000902

PATIENT
  Age: 54 Year
  Sex: Male

DRUGS (1)
  1. NURTEC ODT [Suspect]
     Active Substance: RIMEGEPANT SULFATE
     Indication: Product used for unknown indication
     Dosage: TAKE 1 TAB BY MOUTH
     Route: 048

REACTIONS (3)
  - Adverse event [Unknown]
  - Diarrhoea [Unknown]
  - Dizziness [Unknown]
